FAERS Safety Report 11417572 (Version 1)
Quarter: 2015Q3

REPORT INFORMATION
  Report Type: Spontaneous
  Country: SE (occurrence: SE)
  Receive Date: 20150825
  Receipt Date: 20150825
  Transmission Date: 20151125
  Serious: Yes (Life-Threatening, Hospitalization, Other)
  Sender: FDA-Public Use
  Company Number: SE-GILEAD-2015-0168106

PATIENT
  Age: 62 Year
  Sex: Female

DRUGS (11)
  1. SOVALDI [Suspect]
     Active Substance: SOFOSBUVIR
     Indication: HEPATITIS C
     Dosage: 400 MG, QD
     Route: 048
     Dates: start: 20150529, end: 20150803
  2. METOPROLOL [Concomitant]
     Active Substance: METOPROLOL
  3. ENALAPRIL [Concomitant]
     Active Substance: ENALAPRIL
  4. AZATHIOPRINE. [Concomitant]
     Active Substance: AZATHIOPRINE
  5. SALICYLIC ACID. [Concomitant]
     Active Substance: SALICYLIC ACID
  6. DACLATASVIR DIHYDROCHLORIDE [Suspect]
     Active Substance: DACLATASVIR DIHYDROCHLORIDE
     Indication: HEPATITIS C
     Dosage: 60 MG, QD
     Route: 048
     Dates: start: 20150529, end: 20150803
  7. KALCIPOS-D [Concomitant]
     Active Substance: CALCIUM CARBONATE\CHOLECALCIFEROL
  8. MEDROL [Concomitant]
     Active Substance: METHYLPREDNISOLONE
  9. WARAN [Concomitant]
     Active Substance: WARFARIN SODIUM
  10. TROMBYL [Concomitant]
     Active Substance: ASPIRIN
  11. FLUNITRAZEPAM [Concomitant]
     Active Substance: FLUNITRAZEPAM

REACTIONS (1)
  - Ventricular tachycardia [Recovered/Resolved]

NARRATIVE: CASE EVENT DATE: 20150701
